FAERS Safety Report 6537368 (Version 1)
Quarter: 2020Q3

REPORT INFORMATION
  Report Type: Report from Study
  Country: JP (occurrence: JP)
  Receive Date: 20080129
  Receipt Date: 20080129
  Transmission Date: 20201104
  Serious: Yes (Hospitalization)
  Sender: FDA-Public Use
  Company Number: JP-JNJFOC-20070903210

PATIENT
  Age: 48 Year
  Sex: Male

DRUGS (17)
  1. CEFAZOLIN [Suspect]
     Active Substance: CEFAZOLIN
     Indication: INFECTION PROPHYLAXIS
     Route: 041
  2. COCARL [Concomitant]
     Route: 048
  3. AZATHIOPRINE. [Concomitant]
     Active Substance: AZATHIOPRINE
     Indication: RENAL IMPAIRMENT
     Route: 048
  4. LASIX [Concomitant]
     Active Substance: FUROSEMIDE
     Indication: RENAL IMPAIRMENT
     Route: 048
  5. FINIBAX [Suspect]
     Active Substance: DORIPENEM MONOHYDRATE
     Route: 041
  6. 5?FU [Suspect]
     Active Substance: FLUOROURACIL
     Route: 041
  7. DALACIN?S [Suspect]
     Active Substance: CLINDAMYCIN
     Indication: TUMOUR ASSOCIATED FEVER
     Route: 041
  8. LEUCOVORIN. [Concomitant]
     Active Substance: LEUCOVORIN
     Route: 065
  9. NASEA [Concomitant]
     Indication: PROPHYLAXIS OF NAUSEA AND VOMITING
     Route: 065
  10. ENALAPRIL MALEATE. [Concomitant]
     Active Substance: ENALAPRIL MALEATE
     Route: 048
  11. ALLOPURINOL. [Concomitant]
     Active Substance: ALLOPURINOL
     Route: 048
  12. AQUPLA [Suspect]
     Active Substance: NEDAPLATIN
     Route: 041
  13. 5?FU [Suspect]
     Active Substance: FLUOROURACIL
     Indication: PRODUCT USED FOR UNKNOWN INDICATION
     Route: 041
  14. FINIBAX [Suspect]
     Active Substance: DORIPENEM MONOHYDRATE
     Indication: TUMOUR ASSOCIATED FEVER
     Route: 041
  15. AQUPLA [Suspect]
     Active Substance: NEDAPLATIN
     Indication: PRODUCT USED FOR UNKNOWN INDICATION
     Route: 041
  16. PREDONINE [Concomitant]
     Active Substance: PREDNISOLONE
     Indication: RENAL IMPAIRMENT
     Route: 048
  17. SIMVASTATIN. [Concomitant]
     Active Substance: SIMVASTATIN
     Route: 048

REACTIONS (4)
  - Hypoalbuminaemia [Recovering/Resolving]
  - Anaemia [Recovering/Resolving]
  - Renal impairment [Recovering/Resolving]
  - Hyponatraemia [Recovering/Resolving]

NARRATIVE: CASE EVENT DATE: 20070406
